FAERS Safety Report 17055301 (Version 1)
Quarter: 2019Q4

REPORT INFORMATION
  Report Type: Report from Study
  Country: FR (occurrence: FR)
  Receive Date: 20191120
  Receipt Date: 20191120
  Transmission Date: 20200122
  Serious: Yes (Hospitalization, Other)
  Sender: FDA-Public Use
  Company Number: FR-JAZZ-2019-FR-013837

PATIENT

DRUGS (7)
  1. DEFITELIO [Suspect]
     Active Substance: DEFIBROTIDE SODIUM
     Indication: PROPHYLAXIS
     Dosage: 25 MG/KG/DAY
     Route: 042
     Dates: start: 20190829
  2. DEFITELIO [Suspect]
     Active Substance: DEFIBROTIDE SODIUM
     Indication: VENOOCCLUSIVE DISEASE
  3. HEPARIN [Concomitant]
     Active Substance: HEPARIN SODIUM
     Indication: PROPHYLAXIS
     Dosage: UNK
     Route: 042
     Dates: start: 20190829, end: 20190910
  4. CEFEPIME [Concomitant]
     Active Substance: CEFEPIME HYDROCHLORIDE
     Indication: ANTIBIOTIC THERAPY
     Dosage: 5700 MG
     Route: 042
     Dates: start: 20190905, end: 20190912
  5. CICLOSPORINE [Concomitant]
     Active Substance: CYCLOSPORINE
     Indication: PROPHYLAXIS
     Dosage: 60 MG
     Route: 042
     Dates: start: 20190829
  6. SOLUDACTONE [Concomitant]
     Active Substance: CANRENOATE POTASSIUM\TROMETHAMINE
     Indication: STEROID THERAPY
     Dosage: 70 MG
     Route: 042
     Dates: start: 20190906, end: 20190923
  7. TRIFLUCAN [Concomitant]
     Active Substance: FLUCONAZOLE
     Indication: ANTIFUNGAL TREATMENT
     Dosage: 200 MG
     Route: 048
     Dates: start: 20190903

REACTIONS (3)
  - Cystitis haemorrhagic [Recovered/Resolved]
  - Intentional product use issue [Unknown]
  - Venoocclusive disease [Unknown]

NARRATIVE: CASE EVENT DATE: 2019
